FAERS Safety Report 6947883-9 (Version None)
Quarter: 2010Q3

REPORT INFORMATION
  Report Type: 
  Country: None (occurrence: None)
  Receive Date: 20100828
  Receipt Date: 20091006
  Transmission Date: 20110219
  Serious: No
  Sender: FDA-Public Use
  Company Number: US-ABBOTT-09P-163-0601906-00

PATIENT
  Sex: Male
  Weight: 71.732 kg

DRUGS (3)
  1. NIASPAN [Suspect]
     Indication: HIGH DENSITY LIPOPROTEIN DECREASED
     Dates: start: 20091004
  2. UNKNOWN ANTIHISTAMINE [Concomitant]
     Indication: HYPERSENSITIVITY
  3. HYDROCORTISONE AC [Concomitant]
     Indication: HAEMORRHOIDS

REACTIONS (3)
  - FLUSHING [None]
  - HYPERHIDROSIS [None]
  - PARAESTHESIA [None]
